FAERS Safety Report 10209242 (Version 1)
Quarter: 2014Q2

REPORT INFORMATION
  Report Type: Spontaneous
  Country: DE (occurrence: DE)
  Receive Date: 20140530
  Receipt Date: 20140530
  Transmission Date: 20141212
  Serious: Yes (Hospitalization)
  Sender: FDA-Public Use
  Company Number: DE-MERCK-1405DEU015605

PATIENT
  Age: 60 Year
  Sex: Male

DRUGS (1)
  1. XELEVIA [Suspect]
     Indication: DIABETES MELLITUS
     Dosage: UNK
     Route: 048
     Dates: start: 201402, end: 20140516

REACTIONS (2)
  - Weight decreased [Recovered/Resolved]
  - Diarrhoea [Recovered/Resolved]
